FAERS Safety Report 8923000 (Version 1)
Quarter: 2012Q4

REPORT INFORMATION
  Report Type: Spontaneous
  Country: US (occurrence: None)
  Receive Date: 20121115
  Receipt Date: 20121115
  Transmission Date: 20130627
  Serious: Yes (Other)
  Sender: FDA-Public Use
  Company Number: None

PATIENT
  Age: 37 Year
  Sex: Male
  Weight: 66.1 kg

DRUGS (3)
  1. STRIBILD [Suspect]
     Indication: HIV INFECTION
     Route: 048
     Dates: start: 20121107, end: 20121114
  2. STRIBILD [Suspect]
     Indication: HIV INFECTION
  3. STRIBILD [Suspect]
     Indication: HIV INFECTION

REACTIONS (3)
  - Rash [None]
  - Pruritus [None]
  - Tinnitus [None]
